FAERS Safety Report 12743691 (Version 2)
Quarter: 2017Q1

REPORT INFORMATION
  Report Type: Spontaneous
  Country: US (occurrence: US)
  Receive Date: 20160914
  Receipt Date: 20170206
  Transmission Date: 20170428
  Serious: Yes (Other)
  Sender: FDA-Public Use
  Company Number: US-TEVA-692335USA

PATIENT
  Sex: Female

DRUGS (1)
  1. COPAXONE [Suspect]
     Active Substance: GLATIRAMER ACETATE
     Dosage: UNKNOWN FORM STRENGTH
     Route: 065
     Dates: start: 2016

REACTIONS (6)
  - Cerebral ischaemia [Unknown]
  - Hypoaesthesia [Unknown]
  - Fall [Unknown]
  - Carotid artery dissection [Unknown]
  - Aortic valve stenosis [Unknown]
  - Blood glucose abnormal [Unknown]
